FAERS Safety Report 15385196 (Version 4)
Quarter: 2018Q4

REPORT INFORMATION
  Report Type: Spontaneous
  Country: BR (occurrence: BR)
  Receive Date: 20180914
  Receipt Date: 20181224
  Transmission Date: 20190204
  Serious: Yes (Other)
  Sender: FDA-Public Use
  Company Number: PHHY2018BR097522

PATIENT
  Sex: Male

DRUGS (1)
  1. TRILEPTAL [Suspect]
     Active Substance: OXCARBAZEPINE
     Indication: SEIZURE
     Dosage: 8 ML, TID
     Route: 048
     Dates: start: 1992

REACTIONS (4)
  - Discomfort [Unknown]
  - Vomiting [Unknown]
  - Choking [Unknown]
  - Syringe issue [Unknown]
